FAERS Safety Report 25811956 (Version 1)
Quarter: 2025Q3

REPORT INFORMATION
  Report Type: Spontaneous
  Country: US (occurrence: US)
  Receive Date: 20250917
  Receipt Date: 20250917
  Transmission Date: 20251020
  Serious: No
  Sender: BRISTOL-MYERS SQUIBB COMPANY
  Company Number: US-BRISTOL-MYERS SQUIBB COMPANY-2025-128103

PATIENT
  Age: 76 Year
  Sex: Female
  Weight: 62.6 kg

DRUGS (15)
  1. POMALYST [Suspect]
     Active Substance: POMALIDOMIDE
     Indication: Plasma cell myeloma
     Dates: start: 20250822, end: 20250910
  2. LENALIDOMIDE AURO [Concomitant]
     Indication: Product used for unknown indication
     Dosage: TAKE 1 CAPSULE (5 MG) BY MOUTH ONCE DAILY FOR 21 DAYS ON. 7 DAYS OFF OF EACH 28 DAYS
  3. REVLIMID [Concomitant]
     Active Substance: LENALIDOMIDE
     Indication: Product used for unknown indication
     Dosage: 10 MG AND 5 MG (TAKE 1 CAPSULE (10 MG) BY MOUTH ONCE DAILY FOR 21 DAYS ON. 7 DAYS OFF OF EACH 28 DAYS)
  4. ASPIRIN [Concomitant]
     Active Substance: ASPIRIN
     Indication: Product used for unknown indication
  5. ACYCLOVIR [Concomitant]
     Active Substance: ACYCLOVIR
     Indication: Product used for unknown indication
  6. METOPROLOL TARTRATE [Concomitant]
     Active Substance: METOPROLOL TARTRATE
     Indication: Product used for unknown indication
  7. ONDANSETRON HYDROCHLORIDE [Concomitant]
     Active Substance: ONDANSETRON HYDROCHLORIDE
     Indication: Product used for unknown indication
  8. COLESTIPOL HYDROCHLORIDE [Concomitant]
     Active Substance: COLESTIPOL HYDROCHLORIDE
     Indication: Product used for unknown indication
  9. FLUCONAZOLE [Concomitant]
     Active Substance: FLUCONAZOLE
     Indication: Product used for unknown indication
  10. ALLOPURINOL [Concomitant]
     Active Substance: ALLOPURINOL
     Indication: Product used for unknown indication
  11. ATORVASTATIN CALCIUM [Concomitant]
     Active Substance: ATORVASTATIN CALCIUM
     Indication: Product used for unknown indication
  12. ELIQUIS [Concomitant]
     Active Substance: APIXABAN
     Indication: Product used for unknown indication
  13. LENALIDOMIDE [Concomitant]
     Active Substance: LENALIDOMIDE
     Indication: Product used for unknown indication
     Dosage: TAKE 1 CAPSULE (5 MG) BY MOUTH ONCE DAILY FOR 21 DAYS ON. 7 DAYS OFF OF EACH 28 DAYS
  14. LENALIDOMIDE [Concomitant]
     Active Substance: LENALIDOMIDE
     Indication: Product used for unknown indication
     Dosage: TAKE 1 CAPSULE (5 MG) BY MOUTH ONCE DAILY FOR 21 DAYS ON. 7 DAYS OFF OF EACH 28 DAYS
  15. LENALIDOMIDE [Concomitant]
     Active Substance: LENALIDOMIDE
     Indication: Product used for unknown indication
     Dosage: TAKE 1 CAPSULE (5 MG) BY MOUTH ONCE DAILY FOR 21 DAYS ON. 7 DAYS OFF OF EACH 28 DAYS

REACTIONS (1)
  - White blood cell count decreased [Recovering/Resolving]

NARRATIVE: CASE EVENT DATE: 20250910
